FAERS Safety Report 4725837-0 (Version None)
Quarter: 2005Q3

REPORT INFORMATION
  Report Type: 
  Country: None (occurrence: None)
  Receive Date: 20050725
  Receipt Date: 20050725
  Transmission Date: 20060218
  Serious: Yes (Hospitalization)
  Sender: FDA-Public Use
  Company Number: None

PATIENT
  Age: 42 Year
  Sex: Male

DRUGS (4)
  1. METHOTREXATE [Suspect]
  2. METHOTREXATE [Concomitant]
  3. CYTARABINE - CYTOSAR-U [Concomitant]
  4. LEUCOVORIN [Concomitant]

REACTIONS (1)
  - FEBRILE NEUTROPENIA [None]
